FAERS Safety Report 16327557 (Version 2)
Quarter: 2019Q2

REPORT INFORMATION
  Report Type: Spontaneous
  Country: TR (occurrence: TR)
  Receive Date: 20190517
  Receipt Date: 20190521
  Transmission Date: 20190711
  Serious: Yes (Life-Threatening, Hospitalization, Other)
  Sender: FDA-Public Use
  Company Number: TR-GILEAD-2019-0408124

PATIENT
  Age: 17 Year
  Sex: Male

DRUGS (1)
  1. GENVOYA [Suspect]
     Active Substance: COBICISTAT\ELVITEGRAVIR\EMTRICITABINE\TENOFOVIR ALAFENAMIDE FUMARATE
     Indication: HIV INFECTION
     Dosage: UNK
     Route: 065

REACTIONS (13)
  - Suicide attempt [Recovered/Resolved]
  - Alanine aminotransferase increased [Not Recovered/Not Resolved]
  - Product use issue [Unknown]
  - Renal failure [Recovered/Resolved]
  - Viral load increased [Not Recovered/Not Resolved]
  - Renal impairment [Recovered/Resolved]
  - Blood lactate dehydrogenase increased [Unknown]
  - Vomiting [Recovered/Resolved]
  - Overdose [Recovered/Resolved]
  - Hepatic enzyme increased [Not Recovered/Not Resolved]
  - Product dose omission [Unknown]
  - Aspartate aminotransferase increased [Not Recovered/Not Resolved]
  - Blood creatine phosphokinase increased [Unknown]

NARRATIVE: CASE EVENT DATE: 2019
